FAERS Safety Report 8740232 (Version 2)
Quarter: 2013Q4

REPORT INFORMATION
  Report Type: Spontaneous
  Country: BR (occurrence: BR)
  Receive Date: 20120823
  Receipt Date: 20131106
  Transmission Date: 20140711
  Serious: Yes (Death, Other)
  Sender: FDA-Public Use
  Company Number: BR-009507513-1203BRA00053

PATIENT
  Sex: Male

DRUGS (3)
  1. VICTRELIS [Suspect]
     Dosage: UNK
     Dates: start: 201202
  2. MK-8908 [Suspect]
     Dosage: UNK
  3. INTERFERON (UNSPECIFIED) [Concomitant]

REACTIONS (11)
  - Varices oesophageal [Fatal]
  - Acute respiratory failure [Fatal]
  - Septic shock [Fatal]
  - Upper gastrointestinal haemorrhage [Fatal]
  - Pneumonia [Fatal]
  - Blood pressure inadequately controlled [Unknown]
  - Urine output decreased [Unknown]
  - Diarrhoea [Unknown]
  - Nausea [Unknown]
  - Headache [Unknown]
  - Drug ineffective [Unknown]
